FAERS Safety Report 4927776-9 (Version None)
Quarter: 2006Q1

REPORT INFORMATION
  Report Type: 
  Country: None (occurrence: None)
  Receive Date: 20060228
  Receipt Date: 20051027
  Transmission Date: 20060701
  Serious: Yes (Hospitalization, Disabling)
  Sender: FDA-Public Use
  Company Number: US-GLAXOSMITHKLINE-A0579910A

PATIENT
  Age: 47 Year
  Sex: Male

DRUGS (7)
  1. ZIAGEN [Suspect]
     Indication: HIV INFECTION
     Dosage: 1TAB TWICE PER DAY
     Route: 048
     Dates: start: 20050822, end: 20051027
  2. KALETRA [Concomitant]
  3. ZERIT [Concomitant]
  4. BACTRIM [Concomitant]
  5. VIREAD [Concomitant]
  6. ZITHROMAX [Concomitant]
  7. FUZEON [Concomitant]

REACTIONS (4)
  - BLISTER [None]
  - HYPERSENSITIVITY [None]
  - PYREXIA [None]
  - RASH [None]
